FAERS Safety Report 24760106 (Version 1)
Quarter: 2024Q4

REPORT INFORMATION
  Report Type: Spontaneous
  Country: IT (occurrence: IT)
  Receive Date: 20241220
  Receipt Date: 20241220
  Transmission Date: 20250115
  Serious: Yes (Death, Life-Threatening, Hospitalization, Other)
  Sender: MERCK
  Company Number: None

PATIENT
  Age: 58 Year
  Sex: Female

DRUGS (1)
  1. KEYTRUDA [Suspect]
     Active Substance: PEMBROLIZUMAB
     Indication: Lung carcinoma cell type unspecified stage IV
     Dosage: 200 MG EVERY 21 DAYS; 1 SINGLE ADMINISTRATION IS RECOMMENDED
     Route: 042
     Dates: start: 20241113, end: 20241113

REACTIONS (9)
  - Respiratory failure [Not Recovered/Not Resolved]
  - Pancreatitis [Not Recovered/Not Resolved]
  - Hepatitis [Not Recovered/Not Resolved]
  - Gastrointestinal haemorrhage [Not Recovered/Not Resolved]
  - Colitis [Not Recovered/Not Resolved]
  - Haemorrhagic erosive gastritis [Not Recovered/Not Resolved]
  - Acute respiratory distress syndrome [Fatal]
  - Pneumonitis [Not Recovered/Not Resolved]
  - Bronchoalveolar lavage abnormal [Not Recovered/Not Resolved]

NARRATIVE: CASE EVENT DATE: 20241116
